FAERS Safety Report 8137781-X (Version None)
Quarter: 2012Q1

REPORT INFORMATION
  Report Type: 
  Country: None (occurrence: None)
  Receive Date: 20120215
  Receipt Date: 20120208
  Transmission Date: 20120608
  Serious: Yes (Other)
  Sender: FDA-Public Use
  Company Number: US-BAYER-2011-075129

PATIENT
  Age: 32 Year
  Sex: Female
  Weight: 93.878 kg

DRUGS (6)
  1. YAZ [Suspect]
     Indication: MENSTRUAL DISORDER
     Dosage: UNK
     Route: 048
     Dates: start: 20081201, end: 20090401
  2. DITROPAN [Concomitant]
  3. ZYRTEC [Concomitant]
     Indication: MULTIPLE ALLERGIES
     Dosage: 1 UNK, UNK
     Route: 048
  4. YAZ [Suspect]
     Indication: HYPERTRICHOSIS
  5. FIORICET [Concomitant]
     Indication: MIGRAINE
     Dosage: UNK UNK, PRN
     Route: 048
     Dates: start: 20060801
  6. PRILOSEC [Concomitant]
     Indication: DYSPEPSIA
     Dosage: 20 MG, UNK
     Route: 048

REACTIONS (4)
  - CHOLECYSTECTOMY [None]
  - INJURY [None]
  - PAIN [None]
  - BILIARY DYSKINESIA [None]
